FAERS Safety Report 4662843-9 (Version None)
Quarter: 2005Q2

REPORT INFORMATION
  Report Type: 
  Country: None (occurrence: None)
  Receive Date: 20050511
  Receipt Date: 20050209
  Transmission Date: 20051028
  Serious: Yes (Other)
  Sender: FDA-Public Use
  Company Number: 389813

PATIENT
  Age: 44 Year
  Sex: Female

DRUGS (3)
  1. PEGASYS [Suspect]
     Indication: HEPATITIS C
     Dosage: 1 PER WEEK SUBCUTANEOUS
     Route: 058
     Dates: start: 20041029, end: 20041209
  2. COPEGUS [Concomitant]
  3. NEUROFEN (IBUPROFEN) [Concomitant]

REACTIONS (4)
  - HYPERSENSITIVITY [None]
  - PRURITUS [None]
  - RASH [None]
  - WHITE BLOOD CELL COUNT DECREASED [None]
